FAERS Safety Report 9418437 (Version 2)
Quarter: 2013Q3

REPORT INFORMATION
  Report Type: Spontaneous
  Country: US (occurrence: US)
  Receive Date: 20130725
  Receipt Date: 20130828
  Transmission Date: 20140515
  Serious: No
  Sender: FDA-Public Use
  Company Number: US-BIOGENIDEC-2013BI067351

PATIENT
  Age: 41 Year
  Sex: Female

DRUGS (1)
  1. TYSABRI [Suspect]
     Indication: MULTIPLE SCLEROSIS
     Route: 042
     Dates: start: 20130531

REACTIONS (5)
  - Feeling abnormal [Recovered/Resolved]
  - Tooth extraction [Recovered/Resolved]
  - Hypersensitivity [Recovered/Resolved]
  - Tooth abscess [Recovered/Resolved]
  - Adverse event [Unknown]
